FAERS Safety Report 26108806 (Version 1)
Quarter: 2025Q4

REPORT INFORMATION
  Report Type: Spontaneous
  Country: GB (occurrence: GB)
  Receive Date: 20251201
  Receipt Date: 20251201
  Transmission Date: 20260118
  Serious: Yes (Other)
  Sender: INSUD PHARMA
  Company Number: None

PATIENT
  Age: 11 Year
  Sex: Male
  Weight: 49 kg

DRUGS (9)
  1. OMEPRAZOLE [Suspect]
     Active Substance: OMEPRAZOLE
     Indication: Ill-defined disorder
     Dosage: TAKE ONE DAILY FOR 2 MONTHS MAXIMUM BUT STOP AF...
     Route: 065
     Dates: start: 20251106
  2. GAVISCON [CALCIUM CARBONATE] [Concomitant]
     Indication: Ill-defined disorder
     Dosage: 5 - 10 MLS TWICE DAILY  FOR 4 - 8 WEEKS AND STO...
     Route: 065
     Dates: start: 20251120
  3. OILATUM [PARAFFIN NOS] [Concomitant]
     Indication: Ill-defined disorder
     Dosage: USE AS A SOAP SUBSTITUTE AND MOISTURISER
     Route: 065
     Dates: start: 20230315
  4. LACTULOSE [Concomitant]
     Active Substance: LACTULOSE
     Indication: Ill-defined disorder
     Dosage: 10ML TWICE DAILY WHEN NEEDED
     Route: 065
     Dates: start: 20230907
  5. BECLOMETHASONE DIPROPIONATE [Concomitant]
     Active Substance: BECLOMETHASONE DIPROPIONATE
     Indication: Ill-defined disorder
     Dosage: TWO PUFFS TWICE DAILY
     Route: 065
     Dates: start: 20250624
  6. FLUTICASONE FUROATE [Concomitant]
     Active Substance: FLUTICASONE FUROATE
     Indication: Ill-defined disorder
     Dosage: ONE TO TWO SPRAYS IN TO EACH NOSTRIL ONCE A DAY
     Route: 065
     Dates: start: 20250624
  7. ALBUTEROL [Concomitant]
     Active Substance: ALBUTEROL
     Indication: Ill-defined disorder
     Dosage: INHALE 2 DOSES AS NEEDED
     Route: 065
     Dates: start: 20250624
  8. CROMOLYN SODIUM [Concomitant]
     Active Substance: CROMOLYN SODIUM
     Indication: Ill-defined disorder
     Dosage: ONE DROP 4 TIMES/DAY
     Route: 065
     Dates: start: 20250624
  9. LORATADINE [Concomitant]
     Active Substance: LORATADINE
     Indication: Ill-defined disorder
     Dosage: TAKE ONE DAILY
     Route: 065
     Dates: start: 20250624

REACTIONS (2)
  - Myalgia [Recovered/Resolved]
  - Neck pain [Recovered/Resolved]
